FAERS Safety Report 8260998-0 (Version None)
Quarter: 2012Q2

REPORT INFORMATION
  Report Type: 
  Country: None (occurrence: None)
  Receive Date: 20120405
  Receipt Date: 20120326
  Transmission Date: 20120825
  Serious: Yes (Other)
  Sender: FDA-Public Use
  Company Number: DE-JNJFOC-20120308702

PATIENT
  Sex: Female
  Weight: 56 kg

DRUGS (3)
  1. REMICADE [Suspect]
     Indication: COLITIS ULCERATIVE
     Route: 042
     Dates: start: 20111020
  2. OSSOFORTIN [Concomitant]
     Indication: OSTEOPOROSIS
     Route: 065
  3. PREDNISOLONE [Concomitant]
     Indication: COLITIS ULCERATIVE
     Route: 065

REACTIONS (4)
  - PALPITATIONS [None]
  - DYSPNOEA [None]
  - INFUSION RELATED REACTION [None]
  - CHEST PAIN [None]
